FAERS Safety Report 20804365 (Version 3)
Quarter: 2022Q4

REPORT INFORMATION
  Report Type: Spontaneous
  Country: JP (occurrence: JP)
  Receive Date: 20220509
  Receipt Date: 20221129
  Transmission Date: 20230113
  Serious: Yes (Hospitalization)
  Sender: FDA-Public Use
  Company Number: JP-GLAXOSMITHKLINE-JP2022JPN075244

PATIENT

DRUGS (8)
  1. SOTROVIMAB [Suspect]
     Active Substance: SOTROVIMAB
     Indication: COVID-19
     Dosage: 500 MG
     Route: 042
     Dates: start: 20220502, end: 20220502
  2. ACETAMINOPHEN [Suspect]
     Active Substance: ACETAMINOPHEN
     Indication: Antipyresis
     Dosage: 1500 MG
     Route: 048
     Dates: start: 20220501, end: 20220503
  3. MAGNESIUM OXIDE [Suspect]
     Active Substance: MAGNESIUM OXIDE
     Indication: Constipation
     Dosage: 990 MG
     Route: 048
     Dates: start: 20220105, end: 20220520
  4. DOMIPHEN BROMIDE [Suspect]
     Active Substance: DOMIPHEN BROMIDE
     Indication: Oropharyngeal pain
     Dosage: 0.5 MG/DOSE, AS NEEDED
     Route: 048
     Dates: start: 20220503, end: 20220505
  5. SODIUM FERROUS CITRATE [Suspect]
     Active Substance: SODIUM FERROUS CITRATE
     Indication: Anaemia
     Dosage: 100 MG
     Route: 048
     Dates: start: 20220521, end: 20220521
  6. FERROUS FUMARATE [Suspect]
     Active Substance: FERROUS FUMARATE
     Indication: Anaemia
     Dosage: 100 MG
     Route: 048
     Dates: start: 20220522, end: 20220522
  7. FERRIC PYROPHOSPHATE [Suspect]
     Active Substance: FERRIC PYROPHOSPHATE
     Indication: Anaemia
     Dosage: 15 ML
     Route: 048
     Dates: start: 20220523, end: 20220614
  8. BIO-THREE [Suspect]
     Active Substance: HERBALS
     Indication: Diarrhoea
     Dosage: 3 DF
     Route: 048
     Dates: start: 20220525, end: 20220531

REACTIONS (4)
  - Premature labour [Recovered/Resolved]
  - Premature delivery [Unknown]
  - Caesarean section [Unknown]
  - Exposure during pregnancy [Unknown]

NARRATIVE: CASE EVENT DATE: 20220519
